FAERS Safety Report 18199020 (Version 2)
Quarter: 2020Q3

REPORT INFORMATION
  Report Type: Spontaneous
  Country: TR (occurrence: TR)
  Receive Date: 20200826
  Receipt Date: 20200916
  Transmission Date: 20201103
  Serious: Yes (Other)
  Sender: FDA-Public Use
  Company Number: TR-AMGEN-TURSP2020135157

PATIENT

DRUGS (1)
  1. CINACALCET HCL [Suspect]
     Active Substance: CINACALCET HYDROCHLORIDE
     Indication: HYPERCALCAEMIA
     Dosage: 30 MILLIGRAM, QD
     Route: 065

REACTIONS (6)
  - Blood parathyroid hormone increased [Unknown]
  - Blood calcium increased [Recovered/Resolved]
  - Chronic allograft nephropathy [Unknown]
  - Drug ineffective [Unknown]
  - Off label use [Unknown]
  - Drug resistance [Unknown]
